FAERS Safety Report 16887245 (Version 1)
Quarter: 2019Q4

REPORT INFORMATION
  Report Type: Other
  Country: US (occurrence: US)
  Receive Date: 20191004
  Receipt Date: 20191004
  Transmission Date: 20200122
  Serious: Yes (Other)
  Sender: FDA-Public Use
  Company Number: US-ALSI-2019-00403

PATIENT
  Age: 3 Decade
  Sex: Male

DRUGS (1)
  1. NITROUS OXIDE. [Suspect]
     Active Substance: NITROUS OXIDE
     Indication: DRUG ABUSE
     Route: 055

REACTIONS (3)
  - Neuropathy peripheral [Unknown]
  - Demyelinating polyneuropathy [Unknown]
  - Drug abuse [Unknown]
